FAERS Safety Report 6176302-8 (Version None)
Quarter: 2009Q2

REPORT INFORMATION
  Report Type: 
  Country: None (occurrence: None)
  Receive Date: 20090501
  Receipt Date: 20090424
  Transmission Date: 20091009
  Serious: Yes (Hospitalization, Other)
  Sender: FDA-Public Use
  Company Number: IT-PFIZER INC-2009204005

PATIENT

DRUGS (3)
  1. ATORVASTATIN CALCIUM [Suspect]
     Indication: HYPERLIPIDAEMIA
     Dosage: 10 MG, UNK
  2. RAMIPRIL [Concomitant]
     Dosage: 2.5 MG, UNK
  3. ACETYLSALICYLIC ACID [Concomitant]
     Dosage: 100 MG, UNK

REACTIONS (8)
  - ASTHENIA [None]
  - COMPARTMENT SYNDROME [None]
  - DIABETIC MICROANGIOPATHY [None]
  - JOINT RANGE OF MOTION DECREASED [None]
  - MUSCLE ATROPHY [None]
  - RHABDOMYOLYSIS [None]
  - TYPE 2 DIABETES MELLITUS [None]
  - ULCER [None]
